FAERS Safety Report 9306018 (Version 1)
Quarter: 2013Q1

REPORT INFORMATION
  Report Type: Spontaneous
  Country: CA (occurrence: None)
  Receive Date: 20130320
  Receipt Date: 20130320
  Transmission Date: 20140127
  Serious: Yes (Other)
  Sender: FDA-Public Use
  Company Number: CA-010765

PATIENT
  Sex: Female

DRUGS (3)
  1. DULCOLAX BALANCE [Suspect]
     Indication: BOWEL PREPARATION
     Dosage: 10 MG, GIVEN ONCE
  2. DULCOLAX BALANCE [Suspect]
     Indication: BOWEL PREPARATION
     Dosage: 10 MG, GIVEN ONCE
  3. PICO-SALAX [Suspect]
     Indication: BOWEL PREPARATION
     Dosage: TWO SACHETS ORAL
     Route: 048

REACTIONS (8)
  - Amnesia [None]
  - Depressed level of consciousness [None]
  - Dizziness [None]
  - Electrolyte imbalance [None]
  - Nausea [None]
  - Vomiting [None]
  - Hyponatraemic seizure [None]
  - Pain [None]
